FAERS Safety Report 14003360 (Version 3)
Quarter: 2018Q4

REPORT INFORMATION
  Report Type: Spontaneous
  Country: JP (occurrence: JP)
  Receive Date: 20170922
  Receipt Date: 20181001
  Transmission Date: 20190204
  Serious: Yes (Death)
  Sender: FDA-Public Use
  Company Number: JP-ACTELION-A-CH2017-159821

PATIENT
  Age: 89 Year
  Sex: Female
  Weight: 49 kg

DRUGS (15)
  1. OPSUMIT [Concomitant]
     Active Substance: MACITENTAN
     Indication: PULMONARY ARTERIAL HYPERTENSION
     Dosage: 10 MG, OD
     Route: 048
     Dates: start: 20160910, end: 20170905
  2. FERROUS CITRATE NA [Concomitant]
     Active Substance: SODIUM FERROUS CITRATE
     Dosage: 50 MG, OD
     Route: 048
     Dates: start: 20140529, end: 20170905
  3. FAMOTIDINE. [Concomitant]
     Active Substance: FAMOTIDINE
     Dosage: 20 MG, OD
     Route: 048
     Dates: start: 20110414, end: 20170905
  4. UPTRAVI [Suspect]
     Active Substance: SELEXIPAG
     Dosage: 0.6 MG, BID
     Route: 048
     Dates: start: 20170815, end: 20170821
  5. ADCIRCA [Concomitant]
     Active Substance: TADALAFIL
     Indication: PULMONARY ARTERIAL HYPERTENSION
     Dosage: 40 MG, OD
     Route: 048
     Dates: start: 20110512, end: 20170905
  6. LAC-B [Concomitant]
     Active Substance: BIFIDOBACTERIUM SPP.
     Dosage: 3 G, UNK
     Route: 048
     Dates: start: 20170728, end: 20170905
  7. SAMSCA [Concomitant]
     Active Substance: TOLVAPTAN
     Dosage: 3.75 MG, OD
     Route: 048
     Dates: start: 20170803, end: 20170905
  8. CANDESARTAN. [Concomitant]
     Active Substance: CANDESARTAN
     Indication: HYPERTENSION
     Dosage: 4 MG, OD
     Route: 048
     Dates: end: 20170905
  9. SPIRONOLACTONE. [Concomitant]
     Active Substance: SPIRONOLACTONE
     Dosage: 25 MG, OD
     Route: 048
     Dates: start: 20161222, end: 20170905
  10. ROCORNAL [Concomitant]
     Active Substance: TRAPIDIL
     Dosage: 450 MG, OD
     Route: 048
     Dates: start: 20170330, end: 20170905
  11. UPTRAVI [Suspect]
     Active Substance: SELEXIPAG
     Dosage: 0.2 MG, BID
     Route: 048
     Dates: start: 20170807, end: 20170811
  12. BIO-THREE [Concomitant]
     Active Substance: HERBALS
     Dosage: 3 G, OD
     Route: 048
     Dates: start: 20170802, end: 20170905
  13. UPTRAVI [Suspect]
     Active Substance: SELEXIPAG
     Indication: PULMONARY ARTERIAL HYPERTENSION
     Dosage: 0.8 MG, BID
     Route: 048
     Dates: start: 20170822, end: 20170905
  14. UPTRAVI [Suspect]
     Active Substance: SELEXIPAG
     Dosage: 0.4 MG, BID
     Route: 048
     Dates: start: 20170812, end: 20170814
  15. MIYA-BM [Concomitant]
     Active Substance: CLOSTRIDIUM BUTYRICUM SPORES STRAIN M-55
     Dosage: 3 G, OD
     Route: 048
     Dates: start: 20170802, end: 20170905

REACTIONS (1)
  - Death [Fatal]

NARRATIVE: CASE EVENT DATE: 20170905
